FAERS Safety Report 14274814 (Version 1)
Quarter: 2017Q4

REPORT INFORMATION
  Report Type: Spontaneous
  Country: US (occurrence: US)
  Receive Date: 20171212
  Receipt Date: 20171212
  Transmission Date: 20180321
  Serious: Yes (Death, Hospitalization)
  Sender: FDA-Public Use
  Company Number: US-JNJFOC-20171202683

PATIENT
  Age: 3 Year
  Sex: Male

DRUGS (2)
  1. ACETAMINOPHEN. [Suspect]
     Active Substance: ACETAMINOPHEN
     Indication: PRODUCT USED FOR UNKNOWN INDICATION
     Dosage: ALTERNATING DOSES OF IBUPROFEN AND PARACETAMOL EVERY 4 H FOR 5 D
     Route: 048
  2. ACETAMINOPHEN. [Suspect]
     Active Substance: ACETAMINOPHEN
     Route: 048

REACTIONS (8)
  - Encephalopathy [Fatal]
  - Sepsis [Fatal]
  - Coagulopathy [Fatal]
  - Hypotension [Fatal]
  - Acute hepatic failure [Fatal]
  - Pneumonia [Fatal]
  - Toxicity to various agents [Fatal]
  - Medication error [Fatal]
